FAERS Safety Report 5943163-9 (Version None)
Quarter: 2008Q4

REPORT INFORMATION
  Report Type: 
  Country: None (occurrence: None)
  Receive Date: 20081106
  Receipt Date: 20081031
  Transmission Date: 20090506
  Serious: Yes (Hospitalization)
  Sender: FDA-Public Use
  Company Number: A0754432A

PATIENT
  Age: 37 Year
  Sex: Female

DRUGS (5)
  1. LAMICTAL [Suspect]
     Route: 048
     Dates: start: 20080911, end: 20081014
  2. ADVAIR DISKUS 100/50 [Concomitant]
     Indication: DRUG USE FOR UNKNOWN INDICATION
     Route: 055
  3. ALBUTEROL [Concomitant]
     Indication: DRUG USE FOR UNKNOWN INDICATION
     Route: 065
  4. MELOXICAM [Concomitant]
     Indication: DRUG USE FOR UNKNOWN INDICATION
     Route: 065
  5. IUD [Concomitant]

REACTIONS (4)
  - BLISTER [None]
  - RASH [None]
  - SUICIDAL IDEATION [None]
  - VAGINAL HAEMORRHAGE [None]
